FAERS Safety Report 7015047-9 (Version None)
Quarter: 2010Q3

REPORT INFORMATION
  Report Type: 
  Country: None (occurrence: None)
  Receive Date: 20100927
  Receipt Date: 20100917
  Transmission Date: 20110219
  Serious: Yes (Hospitalization, Other)
  Sender: FDA-Public Use
  Company Number: FR-NOVOPROD-315050

PATIENT
  Age: 67 Year
  Sex: Female

DRUGS (16)
  1. LEVEMIR [Suspect]
     Indication: TYPE 2 DIABETES MELLITUS
     Dosage: 40 IU, QD, ROUTE UNKNOWN
     Dates: end: 20100705
  2. METFORMIN [Suspect]
     Indication: TYPE 2 DIABETES MELLITUS
     Dosage: 1000 MG, TID
     Route: 048
     Dates: end: 20100707
  3. AMAREL [Suspect]
     Indication: TYPE 2 DIABETES MELLITUS
     Dosage: 1 DF, QD
     Route: 048
     Dates: end: 20100707
  4. AUGMENTIN '125' [Suspect]
     Indication: ERYSIPELAS
     Dosage: 1 G, TID
     Dates: start: 20100702, end: 20100707
  5. BRISTOPEN                          /00040801/ [Suspect]
     Indication: ERYSIPELAS
     Dosage: 1 G, BID
     Dates: end: 20100702
  6. ALTEIS [Suspect]
     Indication: HYPERTENSION
     Dosage: 3 DF, QD
     Route: 048
     Dates: end: 20100707
  7. VASTEN                             /00880402/ [Concomitant]
     Indication: PRODUCT USED FOR UNKNOWN INDICATION
     Dosage: TABLET
  8. FLUDROCORTISONE [Concomitant]
     Indication: PRODUCT USED FOR UNKNOWN INDICATION
  9. HYDROCORTISONE [Concomitant]
     Indication: PRODUCT USED FOR UNKNOWN INDICATION
     Dosage: 30 MG, QD
  10. HYDROCORTISONE [Concomitant]
     Dosage: 50 MG, QD
  11. HYDROCORTISONE [Concomitant]
     Dosage: 30 MG, QD
  12. BONVIVA                            /01304701/ [Concomitant]
     Indication: PRODUCT USED FOR UNKNOWN INDICATION
     Dosage: PRE-FILLED SYRINGE
  13. OROCAL D3 [Concomitant]
     Indication: PRODUCT USED FOR UNKNOWN INDICATION
     Dosage: 500MG/200IU, INSTANT TABLET
  14. AERIUS                             /01009701/ [Concomitant]
     Indication: PRODUCT USED FOR UNKNOWN INDICATION
  15. EFFERALGAN                         /00020001/ [Concomitant]
     Indication: PRODUCT USED FOR UNKNOWN INDICATION
  16. LEVOTHYROXINE SODIUM [Concomitant]
     Indication: PRODUCT USED FOR UNKNOWN INDICATION
     Dosage: DIVISIBLE TABLET

REACTIONS (11)
  - ACCIDENTAL OVERDOSE [None]
  - DEHYDRATION [None]
  - DIARRHOEA [None]
  - ERYSIPELAS [None]
  - HYPERKALAEMIA [None]
  - HYPOGLYCAEMIA [None]
  - HYPONATRAEMIA [None]
  - LACTIC ACIDOSIS [None]
  - RENAL FAILURE ACUTE [None]
  - SYNCOPE [None]
  - VOMITING [None]
